FAERS Safety Report 4703855-6 (Version None)
Quarter: 2005Q2

REPORT INFORMATION
  Report Type: 
  Country: None (occurrence: None)
  Receive Date: 20050630
  Receipt Date: 20050523
  Transmission Date: 20051028
  Serious: No
  Sender: FDA-Public Use
  Company Number: US-GLAXOSMITHKLINE-A0559758A

PATIENT
  Age: 78 Year
  Sex: Female

DRUGS (8)
  1. FLOVENT [Suspect]
     Indication: CHRONIC OBSTRUCTIVE PULMONARY DISEASE
     Dosage: 2PUFF TWICE PER DAY
     Route: 055
     Dates: start: 20050517
  2. ATENOLOL [Concomitant]
  3. FUROSEMIDE [Concomitant]
  4. RANITIDINE [Concomitant]
  5. NASACORT AQ [Concomitant]
  6. SPIRONOLACTONE [Concomitant]
  7. AZATHIOPRINE [Concomitant]
  8. DARVOCET [Concomitant]

REACTIONS (2)
  - DRUG INEFFECTIVE [None]
  - PRODUCTIVE COUGH [None]
